FAERS Safety Report 6435011-8 (Version None)
Quarter: 2009Q4

REPORT INFORMATION
  Report Type: 
  Country: None (occurrence: None)
  Receive Date: 20091110
  Receipt Date: 20091030
  Transmission Date: 20100525
  Serious: Yes (Hospitalization, Other)
  Sender: FDA-Public Use
  Company Number: PHHY2009FR47722

PATIENT
  Sex: Male

DRUGS (3)
  1. VOLTAREN [Suspect]
     Dosage: UNK
     Route: 048
  2. LOVENOX [Interacting]
     Indication: THROMBOSIS PROPHYLAXIS
     Dosage: 4000 IU, QD
     Route: 058
     Dates: start: 20090311, end: 20090312
  3. PARACETAMOL [Concomitant]
     Dosage: 4 G PER DAY
     Route: 048

REACTIONS (4)
  - DEEP VEIN THROMBOSIS [None]
  - HAEMATOMA [None]
  - KNEE ARTHROPLASTY [None]
  - PAIN [None]
